FAERS Safety Report 20618690 (Version 3)
Quarter: 2022Q2

REPORT INFORMATION
  Report Type: Spontaneous
  Country: NL (occurrence: NL)
  Receive Date: 20220322
  Receipt Date: 20220618
  Transmission Date: 20220721
  Serious: Yes (Other)
  Sender: FDA-Public Use
  Company Number: NL-ABBVIE-21K-114-4070114-00

PATIENT
  Sex: Male

DRUGS (10)
  1. PRAMIPEXOLE [Suspect]
     Active Substance: PRAMIPEXOLE
     Indication: Parkinson^s disease
     Dosage: 3 DOSAGE FORM, ONCE A DAY
     Route: 048
     Dates: start: 20210201
  2. CARBIDOPA\LEVODOPA [Suspect]
     Active Substance: CARBIDOPA\LEVODOPA
     Indication: Parkinson^s disease
     Dosage: UNK
     Route: 050
  3. CARBIDOPA\LEVODOPA [Suspect]
     Active Substance: CARBIDOPA\LEVODOPA
     Dosage: MD: 0.0 ML, CD: 4.1 ML/H,ED: 2.0 ML, ND: 7.0 ML, CND: 3.5 ML/H,END: 1.5 ML
     Route: 050
  4. CARBIDOPA\LEVODOPA [Suspect]
     Active Substance: CARBIDOPA\LEVODOPA
     Dosage: MD: 8.5 ML, CD: 4.0 ML/H, ED: 1.5 ML, CND: 3.0 ML/H, END: 1.5 ML
     Route: 050
  5. CARBIDOPA\LEVODOPA [Suspect]
     Active Substance: CARBIDOPA\LEVODOPA
     Dosage: MD: 7.0 ML, CD: 4.0 ML/H, ED: 1.5 ML, CND: 3.0 ML/H, ED: 1.5 ML
     Route: 050
  6. CARBIDOPA\LEVODOPA [Suspect]
     Active Substance: CARBIDOPA\LEVODOPA
     Dosage: UNK
     Route: 050
     Dates: start: 20170214
  7. CARBIDOPA\LEVODOPA [Suspect]
     Active Substance: CARBIDOPA\LEVODOPA
     Dosage: MD: 0.0 ML, CD: 4.3 ML/H, ED: 2.0 ML, ND: 0.0 ML, CND: 4.1 ML/H, END: 2.0 ML
     Route: 050
  8. MOVICOLON [Concomitant]
     Active Substance: POLYETHYLENE GLYCOL 3350\POTASSIUM CHLORIDE\SODIUM BICARBONATE\SODIUM CHLORIDE
     Indication: Bowel movement irregularity
     Dosage: 1 DOSAGE FORM  (1 AS NECESSARY)
     Route: 065
  9. BENSERAZIDE HYDROCHLORIDE\LEVODOPA [Concomitant]
     Active Substance: BENSERAZIDE HYDROCHLORIDE\LEVODOPA
     Indication: Parkinson^s disease
     Dosage: 2 DOSAGE FORM, ONCE A DAY
     Route: 065
  10. AMITRIPTYLINE [Concomitant]
     Active Substance: AMITRIPTYLINE
     Indication: Neuropathy peripheral
     Dosage: UNK
     Route: 065
     Dates: end: 20200916

REACTIONS (23)
  - Hallucination [Recovered/Resolved]
  - Tension [Not Recovered/Not Resolved]
  - Emotional disorder [Not Recovered/Not Resolved]
  - Mobility decreased [Recovered/Resolved]
  - COVID-19 [Recovered/Resolved with Sequelae]
  - On and off phenomenon [Unknown]
  - Weight increased [Recovered/Resolved]
  - Device effect decreased [Not Recovered/Not Resolved]
  - Dyskinesia [Unknown]
  - Muscle spasms [Not Recovered/Not Resolved]
  - Memory impairment [Not Recovered/Not Resolved]
  - Muscle rigidity [Unknown]
  - Gait disturbance [Recovered/Resolved]
  - Unevaluable event [Recovered/Resolved]
  - Stress [Unknown]
  - Dystonia [Unknown]
  - Deafness [Not Recovered/Not Resolved]
  - Nocturia [Recovering/Resolving]
  - Medical device site dryness [Unknown]
  - Extra dose administered [Not Recovered/Not Resolved]
  - Stoma site erythema [Unknown]
  - Freezing phenomenon [Recovering/Resolving]
  - Incorrect dose administered [Not Recovered/Not Resolved]

NARRATIVE: CASE EVENT DATE: 20210101
